FAERS Safety Report 20685125 (Version 1)
Quarter: 2022Q2

REPORT INFORMATION
  Report Type: Other
  Country: US (occurrence: None)
  Receive Date: 20220407
  Receipt Date: 20220407
  Transmission Date: 20220721
  Serious: Yes (Other)
  Sender: FDA-Public Use
  Company Number: US-ROCHE-3062043

PATIENT
  Sex: Female

DRUGS (1)
  1. OCREVUS [Suspect]
     Active Substance: OCRELIZUMAB
     Indication: Relapsing multiple sclerosis
     Dosage: YES, DATE OF PREVIOUS INFUSION: 25/JUL/2019 AND DATE OF NEXT INFUSION:23/JAN/2020
     Route: 065
     Dates: start: 20180115

REACTIONS (1)
  - Pneumonia [Recovered/Resolved]
